FAERS Safety Report 18745702 (Version 1)
Quarter: 2021Q1

REPORT INFORMATION
  Report Type: Spontaneous
  Country: US (occurrence: US)
  Receive Date: 20210115
  Receipt Date: 20210115
  Transmission Date: 20210419
  Serious: Yes (Hospitalization)
  Sender: FDA-Public Use
  Company Number: None

PATIENT
  Age: 47 Year
  Sex: Male

DRUGS (20)
  1. SPRYCEL [Suspect]
     Active Substance: DASATINIB
     Indication: ACUTE MYELOID LEUKAEMIA
     Route: 048
     Dates: start: 20201222
  2. CIPROFLOXACN [Concomitant]
     Active Substance: CIPROFLOXACIN
  3. FUROSEMIDE. [Concomitant]
     Active Substance: FUROSEMIDE
  4. DAPSONE. [Concomitant]
     Active Substance: DAPSONE
  5. NYSTATIN. [Concomitant]
     Active Substance: NYSTATIN
  6. HYDROMORPHON [Concomitant]
     Active Substance: HYDROMORPHONE
  7. NYSTOP [Concomitant]
     Active Substance: NYSTATIN
  8. LEVOFLOXACIN. [Concomitant]
     Active Substance: LEVOFLOXACIN
  9. SMZ/TMP DS [Concomitant]
     Active Substance: SULFAMETHOXAZOLE\TRIMETHOPRIM
  10. STIMULANT [Concomitant]
     Active Substance: UNSPECIFIED INGREDIENT
  11. LORAZEPAM. [Concomitant]
     Active Substance: LORAZEPAM
  12. TRIMETHOBENZ [Concomitant]
  13. VITAMIN B?1 [Concomitant]
     Active Substance: THIAMINE HYDROCHLORIDE
  14. CRESEMBA [Concomitant]
     Active Substance: ISAVUCONAZONIUM SULFATE
  15. ACYCLOVIR. [Concomitant]
     Active Substance: ACYCLOVIR
  16. MI?ACID GAS CHW [Concomitant]
  17. DAILY?VITE [Concomitant]
  18. URSODIOL. [Concomitant]
     Active Substance: URSODIOL
  19. METRONIDAZOL [Concomitant]
     Active Substance: METRONIDAZOLE
  20. SYNTHROID [Concomitant]
     Active Substance: LEVOTHYROXINE SODIUM

REACTIONS (3)
  - Drug interaction [None]
  - Therapy interrupted [None]
  - Drug level abnormal [None]

NARRATIVE: CASE EVENT DATE: 20210105
